FAERS Safety Report 9347202 (Version 1)
Quarter: 2013Q2

REPORT INFORMATION
  Report Type: Spontaneous
  Country: BR (occurrence: BR)
  Receive Date: 20130613
  Receipt Date: 20130613
  Transmission Date: 20140414
  Serious: Yes (Other)
  Sender: FDA-Public Use
  Company Number: BR-PFIZER INC-2013176259

PATIENT
  Age: 62 Year
  Sex: Male
  Weight: 85 kg

DRUGS (4)
  1. CITALOR [Suspect]
     Dosage: 1 TABLET OF 20 MG, 1X/DAY
     Dates: start: 201107
  2. CLOPIDOGREL [Concomitant]
  3. SOTALOL HYDROCHLORIDE [Concomitant]
  4. GLIFAGE [Concomitant]

REACTIONS (3)
  - Obesity [Unknown]
  - Hernia [Unknown]
  - Gastrointestinal disorder [Unknown]
